FAERS Safety Report 7112473-4 (Version None)
Quarter: 2010Q4

REPORT INFORMATION
  Report Type: 
  Country: None (occurrence: None)
  Receive Date: 20101119
  Receipt Date: 20101108
  Transmission Date: 20110411
  Serious: Yes (Hospitalization)
  Sender: FDA-Public Use
  Company Number: US-BAYER-201021532NA

PATIENT
  Age: 28 Year
  Sex: Female
  Weight: 78 kg

DRUGS (4)
  1. YAZ [Suspect]
     Indication: CONTRACEPTION
     Route: 048
     Dates: start: 20061101, end: 20090901
  2. TORADOL [Concomitant]
     Indication: ABDOMINAL PAIN
     Dates: start: 20090701
  3. ADIPEX-P [Concomitant]
     Indication: WEIGHT DECREASED
     Route: 048
     Dates: end: 20090601
  4. ADIPEX-P [Concomitant]
     Route: 048
     Dates: start: 20090601

REACTIONS (5)
  - ABDOMINAL PAIN [None]
  - CHOLECYSTITIS CHRONIC [None]
  - CHOLELITHIASIS [None]
  - FLANK PAIN [None]
  - NAUSEA [None]
